FAERS Safety Report 8856275 (Version 3)
Quarter: 2013Q1

REPORT INFORMATION
  Report Type: Spontaneous
  Country: JP (occurrence: None)
  Receive Date: 20121018
  Receipt Date: 20121128
  Transmission Date: 20140127
  Serious: Yes (Death, Other)
  Sender: FDA-Public Use
  Company Number: ADR-2012-01890

PATIENT
  Age: 20 Year
  Sex: Male
  Weight: 30 kg

DRUGS (1)
  1. GABALON [Suspect]
     Indication: CEREBRAL PALSY

REACTIONS (7)
  - Pneumonia aspiration [None]
  - Choking [None]
  - Muscle spasms [None]
  - Cardio-respiratory arrest [None]
  - Condition aggravated [None]
  - Nasopharyngitis [None]
  - Increased upper airway secretion [None]
